FAERS Safety Report 7333288-8 (Version None)
Quarter: 2011Q1

REPORT INFORMATION
  Report Type: 
  Country: None (occurrence: None)
  Receive Date: 20110304
  Receipt Date: 20110221
  Transmission Date: 20110831
  Serious: Yes (Hospitalization, Other)
  Sender: FDA-Public Use
  Company Number: JP-ELI_LILLY_AND_COMPANY-JP201102000385

PATIENT
  Sex: Female
  Weight: 65 kg

DRUGS (6)
  1. LEVOTOMIN [Concomitant]
     Dosage: 1.33 MG, 3/D
     Route: 048
     Dates: start: 20101013, end: 20110126
  2. LEVOTOMIN [Concomitant]
     Indication: FRONTOTEMPORAL DEMENTIA
     Dosage: 5 MG, DAILY (1/D)
     Route: 048
     Dates: start: 20091209, end: 20110126
  3. PANTOSIN [Concomitant]
     Dosage: 200 MG, 3/D
     Route: 048
     Dates: start: 20110105, end: 20110126
  4. ALOSENN                            /00476901/ [Concomitant]
     Indication: CONSTIPATION
     Dosage: 0.5 G, DAILY (1/D)
     Route: 048
     Dates: start: 20090124, end: 20110126
  5. ZYPREXA [Suspect]
     Indication: FRONTOTEMPORAL DEMENTIA
     Dosage: 2.5 MG, DAILY (1/D)
     Route: 048
     Dates: start: 20110124, end: 20110126
  6. RESLIN [Concomitant]
     Indication: FRONTOTEMPORAL DEMENTIA
     Dosage: 50 MG, DAILY (1/D)
     Route: 048
     Dates: start: 20090819, end: 20110126

REACTIONS (8)
  - BLOOD PRESSURE DECREASED [None]
  - URINARY RETENTION [None]
  - OFF LABEL USE [None]
  - PNEUMONIA ASPIRATION [None]
  - POSTRENAL FAILURE [None]
  - GAIT DISTURBANCE [None]
  - SLOW RESPONSE TO STIMULI [None]
  - DEHYDRATION [None]
